FAERS Safety Report 19082173 (Version 1)
Quarter: 2021Q1

REPORT INFORMATION
  Report Type: Spontaneous
  Country: US (occurrence: US)
  Receive Date: 20210331
  Receipt Date: 20210331
  Transmission Date: 20210420
  Serious: Yes (Other)
  Sender: FDA-Public Use
  Company Number: None

PATIENT
  Sex: Male

DRUGS (1)
  1. VIVITROL [Suspect]
     Active Substance: NALTREXONE
     Indication: ALCOHOLISM
     Dosage: ?          QUANTITY:1;OTHER FREQUENCY:ONCE EVERY 28 DAYS;?
     Dates: start: 20210219, end: 20210219

REACTIONS (1)
  - Rash [None]
